FAERS Safety Report 8313986-X (Version None)
Quarter: 2012Q2

REPORT INFORMATION
  Report Type: 
  Country: None (occurrence: None)
  Receive Date: 20120426
  Receipt Date: 20110808
  Transmission Date: 20120825
  Serious: Yes (Other)
  Sender: FDA-Public Use
  Company Number: US-TEVA-US022005

PATIENT
  Sex: Female
  Weight: 45 kg

DRUGS (8)
  1. PROTONIX [Concomitant]
     Indication: GASTROOESOPHAGEAL REFLUX DISEASE
     Dosage: 20 MILLIGRAM;
     Route: 048
     Dates: start: 20070401
  2. PROVIGIL [Suspect]
     Indication: NARCOLEPSY
     Dosage: 100 MILLIGRAM;
     Route: 048
     Dates: start: 20071001
  3. RISPERDAL [Suspect]
     Indication: INSOMNIA
     Dosage: 1.25 MILLIGRAM;
     Route: 048
     Dates: start: 20070601
  4. RISPERDAL [Suspect]
     Dosage: .25 MILLIGRAM;
     Route: 048
     Dates: end: 20071201
  5. NAMENDA [Concomitant]
     Indication: DEMENTIA ALZHEIMER'S TYPE
     Dosage: 20 MILLIGRAM;
     Route: 048
     Dates: start: 20030101
  6. LASIX [Concomitant]
     Indication: FLUID RETENTION
     Route: 048
     Dates: start: 20070401
  7. LEXAPRO [Suspect]
     Indication: DEPRESSION
     Dosage: 20 MILLIGRAM;
     Route: 048
     Dates: start: 20070403, end: 20071222
  8. POTASSIUM CHLORIDE [Concomitant]
     Indication: PROPHYLAXIS
     Route: 048
     Dates: start: 20070401

REACTIONS (3)
  - HALLUCINATION [None]
  - ORAL CANDIDIASIS [None]
  - ANXIETY [None]
